FAERS Safety Report 13672208 (Version 2)
Quarter: 2017Q2

REPORT INFORMATION
  Report Type: Report from Study
  Country: AU (occurrence: AU)
  Receive Date: 20170621
  Receipt Date: 20170630
  Transmission Date: 20170830
  Serious: Yes (Death, Hospitalization)
  Sender: FDA-Public Use
  Company Number: AU-TOLMAR, INC.-2017AU007974

PATIENT
  Age: 93 Year
  Sex: Male

DRUGS (1)
  1. ELIGARD [Suspect]
     Active Substance: LEUPROLIDE ACETATE
     Indication: PROSTATE CANCER
     Dosage: 30 MG, EVERY FOUR MONTHS
     Route: 065
     Dates: start: 20160709, end: 201703

REACTIONS (3)
  - Malaise [Not Recovered/Not Resolved]
  - Death [Fatal]
  - Prostate cancer metastatic [Not Recovered/Not Resolved]

NARRATIVE: CASE EVENT DATE: 20170619
